FAERS Safety Report 9976513 (Version 1)
Quarter: 2014Q1

REPORT INFORMATION
  Report Type: Report from Study
  Country: US (occurrence: US)
  Receive Date: 20140306
  Receipt Date: 20140306
  Transmission Date: 20141002
  Serious: No
  Sender: FDA-Public Use
  Company Number: US-ABBVIE-13P-163-1167494-00

PATIENT
  Age: 52 Year
  Sex: Male
  Weight: 113.5 kg

DRUGS (4)
  1. HUMIRA [Suspect]
     Indication: PSORIASIS
     Dates: start: 2009, end: 201304
  2. ALLOPURINOL [Concomitant]
     Indication: GOUT
  3. LOVASTATIN [Concomitant]
     Indication: BLOOD CHOLESTEROL
  4. ATENOLOL [Concomitant]
     Indication: BLOOD PRESSURE

REACTIONS (1)
  - Psoriasis [Not Recovered/Not Resolved]
